FAERS Safety Report 8761297 (Version 1)
Quarter: 2012Q4

REPORT INFORMATION
  Report Type: 
  Country: US (occurrence: US)
  Receive Date: 20120830
  Receipt Date: 20120830
  Transmission Date: 20130627
  Serious: Yes (Hospitalization)
  Sender: FDA-Public Use
  Company Number: US-WATSON-2012-14753

PATIENT
  Age: 16 Year
  Sex: Female

DRUGS (1)
  1. NEXT CHOICE [Suspect]
     Indication: POST COITAL CONTRACEPTION
     Dosage: UNK
     Route: 048
     Dates: start: 20120720, end: 20120720

REACTIONS (6)
  - Gastritis [Not Recovered/Not Resolved]
  - Nausea [Not Recovered/Not Resolved]
  - Vomiting [Not Recovered/Not Resolved]
  - Abdominal pain [Not Recovered/Not Resolved]
  - Drug dispensing error [Not Recovered/Not Resolved]
  - Vaginal haemorrhage [Recovered/Resolved]
